FAERS Safety Report 9031098 (Version 4)
Quarter: 2013Q4

REPORT INFORMATION
  Report Type: Spontaneous
  Country: FR (occurrence: FR)
  Receive Date: 20130123
  Receipt Date: 20131113
  Transmission Date: 20140711
  Serious: Yes (Hospitalization, Other)
  Sender: FDA-Public Use
  Company Number: FR-PFIZER INC-2013023299

PATIENT
  Age: 78 Year
  Sex: Male

DRUGS (6)
  1. TAHOR [Suspect]
     Indication: DYSLIPIDAEMIA
     Dosage: 20 MG, 1X/DAY
     Dates: end: 20121120
  2. RULID [Interacting]
     Indication: INFECTION
     Dosage: UNK
     Route: 048
     Dates: start: 20121011, end: 20121019
  3. GRAPEFRUIT JUICE [Interacting]
  4. METFORMIN [Concomitant]
     Indication: DIABETES MELLITUS
     Dosage: UNK
     Route: 048
     Dates: end: 20121120
  5. ASPEGIC [Concomitant]
     Dosage: UNK
     Route: 048
     Dates: end: 20121120
  6. KENZEN [Concomitant]
     Dosage: UNK
     Route: 048
     Dates: end: 20121120

REACTIONS (7)
  - Drug interaction [Recovered/Resolved]
  - Rhabdomyolysis [Recovered/Resolved]
  - Hepatitis [Recovered/Resolved]
  - Renal failure acute [Recovered/Resolved]
  - Infection [Unknown]
  - Hepatitis [Recovering/Resolving]
  - Cholestatic liver injury [Unknown]
